FAERS Safety Report 12221758 (Version 1)
Quarter: 2016Q1

REPORT INFORMATION
  Report Type: Spontaneous
  Country: US (occurrence: US)
  Receive Date: 20160330
  Receipt Date: 20160330
  Transmission Date: 20160526
  Serious: No
  Sender: FDA-Public Use
  Company Number: US-MYLANLABS-2015M1005415

PATIENT
  Sex: Male

DRUGS (6)
  1. TRAMADOL. [Concomitant]
     Active Substance: TRAMADOL
     Indication: PAIN
     Dosage: UNK, TID
  2. FENTANYL. [Suspect]
     Active Substance: FENTANYL
     Indication: PAIN
     Dosage: 25 ?G, QH, CHANGED Q72H
     Route: 062
     Dates: start: 2013, end: 2013
  3. DIGOXIN. [Concomitant]
     Active Substance: DIGOXIN
     Dosage: UNK
  4. WARFARIN [Concomitant]
     Active Substance: WARFARIN
     Dosage: UNK
  5. CARVEDILOL. [Concomitant]
     Active Substance: CARVEDILOL
     Dosage: UNK
  6. LIDODERM [Concomitant]
     Active Substance: LIDOCAINE
     Dosage: UNK
     Dates: start: 2013

REACTIONS (3)
  - Inappropriate schedule of drug administration [Recovered/Resolved]
  - Nervousness [Recovered/Resolved]
  - Abdominal pain upper [Recovered/Resolved]

NARRATIVE: CASE EVENT DATE: 2013
